FAERS Safety Report 13264513 (Version 1)
Quarter: 2017Q1

REPORT INFORMATION
  Report Type: Spontaneous
  Country: US (occurrence: US)
  Receive Date: 20170223
  Receipt Date: 20170223
  Transmission Date: 20170428
  Serious: Yes (Death, Other)
  Sender: FDA-Public Use
  Company Number: US-BAYER-2017-032369

PATIENT
  Age: 6 Year
  Sex: Female

DRUGS (11)
  1. ACETYLSALICYLIC ACID({=100 MG) [Suspect]
     Active Substance: ASPIRIN
  2. OXYGEN. [Concomitant]
     Active Substance: OXYGEN
  3. MONTELUKAST [Concomitant]
     Active Substance: MONTELUKAST SODIUM
  4. SILVER COLLOIDAL [Concomitant]
     Active Substance: SILVER
  5. DIGOXIN. [Suspect]
     Active Substance: DIGOXIN
  6. SILDENAFIL. [Concomitant]
     Active Substance: SILDENAFIL
  7. DOXYCYCLIN [Concomitant]
     Active Substance: DOXYCYCLINE
  8. FLUTICASONE. [Concomitant]
     Active Substance: FLUTICASONE
  9. ARGININE [ARGININE] [Concomitant]
  10. FISH OIL [Concomitant]
     Active Substance: FISH OIL
  11. SIMVASTATIN. [Concomitant]
     Active Substance: SIMVASTATIN

REACTIONS (3)
  - Drug administered to patient of inappropriate age [None]
  - Pulmonary hypertension [Fatal]
  - Right ventricular failure [Fatal]
